FAERS Safety Report 8329425-9 (Version None)
Quarter: 2012Q1

REPORT INFORMATION
  Report Type: 
  Country: None (occurrence: None)
  Receive Date: 20120315
  Receipt Date: 20110525
  Transmission Date: 20120608
  Serious: No
  Sender: FDA-Public Use
  Company Number: PHHY2011US45567

PATIENT
  Age: 41 Year
  Sex: Male

DRUGS (5)
  1. GILENYA [Suspect]
     Dosage: 0.5 MG, QD, ORAL
     Route: 048
  2. ESSENTIALE (VITAMINS NOS) [Concomitant]
  3. ASCORBIC ACID [Concomitant]
  4. VITAMINS B3 (NO INGREDIENTS/SUBSTANCES) [Concomitant]
  5. ZINC (ZINC) [Concomitant]

REACTIONS (1)
  - MUSCLE TWITCHING [None]
